FAERS Safety Report 22973460 (Version 2)
Quarter: 2023Q4

REPORT INFORMATION
  Report Type: Spontaneous
  Country: US (occurrence: US)
  Receive Date: 20230922
  Receipt Date: 20231115
  Transmission Date: 20240110
  Serious: No
  Sender: FDA-Public Use
  Company Number: US-PFIZER INC-PV202300158213

PATIENT
  Age: 54 Year
  Sex: Male

DRUGS (2)
  1. XELJANZ XR [Suspect]
     Active Substance: TOFACITINIB CITRATE
     Indication: Colitis ulcerative
     Dosage: 22 MG, DAILY
     Route: 048
     Dates: start: 20230805
  2. PREDNISONE [Concomitant]
     Active Substance: PREDNISONE
     Dosage: 60 MG, DAILY

REACTIONS (4)
  - Drug effect less than expected [Unknown]
  - Constipation [Recovered/Resolved]
  - Somnolence [Unknown]
  - Tinnitus [Unknown]
